FAERS Safety Report 13078803 (Version 2)
Quarter: 2017Q1

REPORT INFORMATION
  Report Type: Spontaneous
  Country: FR (occurrence: FR)
  Receive Date: 20170102
  Receipt Date: 20170104
  Transmission Date: 20170428
  Serious: Yes (Other)
  Sender: FDA-Public Use
  Company Number: PHHY2016FR177967

PATIENT
  Sex: Female

DRUGS (3)
  1. LOXEN [Concomitant]
     Active Substance: NICARDIPINE HYDROCHLORIDE
     Indication: HYPERTENSION
     Dosage: 20 MG, TID
     Route: 048
  2. RAMIPRIL SANDOZ [Suspect]
     Active Substance: RAMIPRIL
     Indication: HYPERTENSION
     Dosage: 1 DF, ONCE/SINGLE (5 MG)
     Route: 048
     Dates: start: 20161218
  3. RAMIPRIL SANDOZ [Suspect]
     Active Substance: RAMIPRIL
     Dosage: 0.5 DF, UNK (2.5 MG)
     Route: 048
     Dates: start: 20161222

REACTIONS (2)
  - Language disorder [Recovered/Resolved]
  - Feeling abnormal [Recovered/Resolved]

NARRATIVE: CASE EVENT DATE: 20161218
